FAERS Safety Report 9240078 (Version 1)
Quarter: 2013Q2

REPORT INFORMATION
  Report Type: Spontaneous
  Country: US (occurrence: None)
  Receive Date: 20130418
  Receipt Date: 20130418
  Transmission Date: 20140414
  Serious: Yes (Death)
  Sender: FDA-Public Use
  Company Number: 1713747-2013-00004

PATIENT
  Age: 65 Year
  Sex: Female
  Weight: 71.8 kg

DRUGS (3)
  1. DELFLEX 1.5% DEX.LM/LC 5L, 2-PK CATALOG#: 044-50521 [Suspect]
  2. LIBERTY DIALYSIS CYCLER TUBING [Concomitant]
  3. LIBERTY DIALYSIS CYCLER [Concomitant]

REACTIONS (3)
  - Transient ischaemic attack [None]
  - Cerebrovascular accident [None]
  - Dyspnoea [None]
